FAERS Safety Report 22044625 (Version 4)
Quarter: 2023Q2

REPORT INFORMATION
  Report Type: Report from Study
  Country: CH (occurrence: CH)
  Receive Date: 20230228
  Receipt Date: 20230403
  Transmission Date: 20230722
  Serious: Yes (Death, Other)
  Sender: FDA-Public Use
  Company Number: CH-ABBVIE-4315563

PATIENT
  Age: 80 Year
  Sex: Male

DRUGS (6)
  1. CARBIDOPA\LEVODOPA [Suspect]
     Active Substance: CARBIDOPA\LEVODOPA
     Indication: Parkinson^s disease
     Dosage: MD: 7 ML, CRD: 3 ML/H, CRN: 1 ML/H, ED: 2 ML
     Route: 050
     Dates: start: 20230215, end: 20230217
  2. CARBIDOPA\LEVODOPA [Suspect]
     Active Substance: CARBIDOPA\LEVODOPA
     Dosage: CRN: 1 ML/H
     Route: 050
     Dates: start: 20230218, end: 20230302
  3. CARBIDOPA\LEVODOPA [Suspect]
     Active Substance: CARBIDOPA\LEVODOPA
     Dosage: CRN: 2ML/H; CRD: 2ML/H
     Route: 050
     Dates: start: 20230302, end: 20230303
  4. CARBIDOPA\LEVODOPA [Suspect]
     Active Substance: CARBIDOPA\LEVODOPA
     Dosage: FREQUENCY TEXT: 24H THERAPY
     Route: 050
     Dates: start: 20161128
  5. CARBIDOPA\LEVODOPA [Suspect]
     Active Substance: CARBIDOPA\LEVODOPA
     Dosage: MD: 7 ML, CRD: 2.9 ML/H, CRN: 1 ML/H, ED: 1 ML 24H THERAPY
     Route: 050
     Dates: start: 20230217, end: 20230218
  6. MORPHINE [Concomitant]
     Active Substance: MORPHINE
     Indication: Product used for unknown indication

REACTIONS (10)
  - Cardiac arrest [Fatal]
  - Dyskinesia [Recovered/Resolved]
  - Mobility decreased [Not Recovered/Not Resolved]
  - Spinal instability [Not Recovered/Not Resolved]
  - Hyperkinesia [Unknown]
  - General physical health deterioration [Not Recovered/Not Resolved]
  - Skin ulcer [Not Recovered/Not Resolved]
  - Dysphagia [Not Recovered/Not Resolved]
  - Palliative care [Fatal]
  - Bedridden [Not Recovered/Not Resolved]

NARRATIVE: CASE EVENT DATE: 20230201
